FAERS Safety Report 9132216 (Version 1)
Quarter: 2013Q1

REPORT INFORMATION
  Report Type: Spontaneous
  Country: FR (occurrence: FR)
  Receive Date: 20130301
  Receipt Date: 20130301
  Transmission Date: 20140127
  Serious: Yes (Hospitalization)
  Sender: FDA-Public Use
  Company Number: FR-PFIZER INC-FR-WYE-G00786307

PATIENT
  Age: 62 Year
  Sex: Female

DRUGS (8)
  1. EFFEXOR LP [Suspect]
     Dosage: 37.5 MG, ALTERNATE DAY
     Route: 048
     Dates: start: 2002, end: 20070907
  2. TAHOR [Suspect]
     Dosage: 40 MG
     Route: 048
     Dates: start: 2002, end: 20070907
  3. SERMION [Suspect]
     Dosage: UNK
     Route: 048
     Dates: start: 2007
  4. LEXOMIL [Suspect]
     Dosage: UNK
     Route: 048
     Dates: start: 2002, end: 20070907
  5. UNSPECIFIED INGREDIENTS [Suspect]
     Dosage: UNKNOWN
     Route: 065
     Dates: start: 2002, end: 20070907
  6. BETASERC [Suspect]
     Dosage: UNKNOWN
     Route: 048
     Dates: start: 2007, end: 20070907
  7. DOLIPRANE [Suspect]
     Dosage: UNK
     Route: 048
     Dates: start: 2007
  8. UNSPECIFIED INGREDIENTS [Suspect]
     Dosage: 400 MG AS NEEDED
     Route: 048
     Dates: start: 2005

REACTIONS (2)
  - Pancytopenia [Not Recovered/Not Resolved]
  - Myelofibrosis [Not Recovered/Not Resolved]
